FAERS Safety Report 8074421-2 (Version None)
Quarter: 2012Q1

REPORT INFORMATION
  Report Type: 
  Country: None (occurrence: None)
  Receive Date: 20120126
  Receipt Date: 20120117
  Transmission Date: 20120608
  Serious: Yes (Life-Threatening, Hospitalization, Disabling)
  Sender: FDA-Public Use
  Company Number: GB-GLAXOSMITHKLINE-B0775622A

PATIENT
  Age: 84 Year
  Sex: Male
  Weight: 76.2 kg

DRUGS (4)
  1. INFLUENZA VACCINE (SPLIT VIRION, INACTIVATED) [Suspect]
     Route: 058
     Dates: start: 20111019, end: 20111019
  2. LISINOPRIL [Concomitant]
  3. ASPIRIN [Concomitant]
  4. ACYCLOVIR [Suspect]
     Indication: MENINGITIS
     Route: 042
     Dates: start: 20111023, end: 20111030

REACTIONS (11)
  - RENAL FAILURE ACUTE [None]
  - CONFUSIONAL STATE [None]
  - OEDEMA PERIPHERAL [None]
  - GENERAL PHYSICAL HEALTH DETERIORATION [None]
  - BLOOD CREATININE INCREASED [None]
  - LOSS OF CONSCIOUSNESS [None]
  - AGITATION [None]
  - MENINGITIS VIRAL [None]
  - MENINGITIS BACTERIAL [None]
  - ENCEPHALITIS [None]
  - COMA [None]
